FAERS Safety Report 15362480 (Version 1)
Quarter: 2018Q3

REPORT INFORMATION
  Report Type: Spontaneous
  Country: US (occurrence: US)
  Receive Date: 20180907
  Receipt Date: 20180907
  Transmission Date: 20181010
  Serious: No
  Sender: FDA-Public Use
  Company Number: US-VIFOR (INTERNATIONAL) INC.-VIT-2018-08593

PATIENT
  Sex: Female
  Weight: 79 kg

DRUGS (7)
  1. MIRCERA [Suspect]
     Active Substance: METHOXY POLYETHYLENE GLYCOL-EPOETIN BETA
     Indication: PRODUCT USED FOR UNKNOWN INDICATION
  2. AMIODARONE [Concomitant]
     Active Substance: AMIODARONE
  3. TORASEMIDE [Concomitant]
     Active Substance: TORSEMIDE
  4. PHOSLO [Concomitant]
     Active Substance: CALCIUM ACETATE
  5. ATORVASTATIN [Concomitant]
     Active Substance: ATORVASTATIN
  6. METOPROLOL. [Concomitant]
     Active Substance: METOPROLOL
  7. NATEGLINIDE. [Concomitant]
     Active Substance: NATEGLINIDE

REACTIONS (1)
  - Alopecia [Unknown]

NARRATIVE: CASE EVENT DATE: 2018
